FAERS Safety Report 5347943-2 (Version None)
Quarter: 2007Q2

REPORT INFORMATION
  Report Type: 
  Country: None (occurrence: None)
  Receive Date: 20070606
  Receipt Date: 20070531
  Transmission Date: 20071010
  Serious: Yes (Other)
  Sender: FDA-Public Use
  Company Number: B0473669A

PATIENT
  Age: 47 Year
  Sex: Female

DRUGS (5)
  1. LAPATINIB [Suspect]
     Route: 048
     Dates: start: 20070330
  2. METRONIDAZOLE [Concomitant]
     Indication: BREAST INFECTION
     Dosage: 400MG THREE TIMES PER DAY
     Route: 048
     Dates: start: 20070101
  3. FLOXACILLIN SODIUM [Concomitant]
     Indication: BREAST INFECTION
     Dosage: 250MG FOUR TIMES PER DAY
     Route: 048
     Dates: start: 20070101
  4. GABAPENTIN [Concomitant]
     Indication: BREAST PAIN
     Dosage: 800MG THREE TIMES PER DAY
     Route: 048
     Dates: start: 20060101
  5. DICLOFENAC [Concomitant]
     Indication: BREAST PAIN
     Dosage: 50MG THREE TIMES PER DAY
     Route: 048
     Dates: start: 20060101

REACTIONS (5)
  - ERYTHEMA NODOSUM [None]
  - PAIN OF SKIN [None]
  - PYREXIA [None]
  - RASH MACULAR [None]
  - RASH PAPULAR [None]
